FAERS Safety Report 8610220-8 (Version None)
Quarter: 2012Q3

REPORT INFORMATION
  Report Type: 
  Country: None (occurrence: None)
  Receive Date: 20120822
  Receipt Date: 20120706
  Transmission Date: 20120928
  Serious: Yes (Other)
  Sender: FDA-Public Use
  Company Number: US-MSD-1207USA001780

PATIENT

DRUGS (3)
  1. RIBAVIRIN [Concomitant]
  2. PEG-INTRON [Suspect]
     Indication: HEPATITIS C
     Dosage: 150 MICROGRAM, QW
     Route: 058
     Dates: start: 20120313, end: 20120420
  3. TELAPREVIR [Concomitant]
     Dosage: UNK

REACTIONS (4)
  - URTICARIA [None]
  - HYPERSENSITIVITY [None]
  - RASH [None]
  - PRURITUS GENERALISED [None]
